FAERS Safety Report 8061517-4 (Version None)
Quarter: 2012Q1

REPORT INFORMATION
  Report Type: 
  Country: None (occurrence: None)
  Receive Date: 20120120
  Receipt Date: 20120110
  Transmission Date: 20120608
  Serious: No
  Sender: FDA-Public Use
  Company Number: US-ALLERGAN-1116886US

PATIENT
  Age: 75 Year
  Sex: Male

DRUGS (3)
  1. AVASTIN [Concomitant]
     Indication: VISUAL IMPAIRMENT
  2. AVASTIN [Concomitant]
     Indication: DRY EYE
     Dosage: UNK
     Route: 031
  3. RESTASIS [Suspect]
     Indication: VISION BLURRED
     Dosage: 2 GTT, BID
     Route: 047
     Dates: start: 20111201, end: 20111201

REACTIONS (3)
  - EYE IRRITATION [None]
  - VISUAL ACUITY REDUCED [None]
  - VISION BLURRED [None]
